FAERS Safety Report 17745440 (Version 2)
Quarter: 2020Q2

REPORT INFORMATION
  Report Type: Spontaneous
  Country: US (occurrence: US)
  Receive Date: 20200504
  Receipt Date: 20200528
  Transmission Date: 20200714
  Serious: Yes (Hospitalization, Other)
  Sender: FDA-Public Use
  Company Number: US-BRISTOL-MYERS SQUIBB COMPANY-BMS-2020-035181

PATIENT
  Age: 50 Year
  Sex: Male

DRUGS (1)
  1. ELIQUIS [Suspect]
     Active Substance: APIXABAN
     Indication: CEREBRAL THROMBOSIS
     Dosage: 5 MILLIGRAM, BID
     Route: 048
     Dates: end: 20200504

REACTIONS (4)
  - Shunt occlusion [Unknown]
  - Intentional product use issue [Unknown]
  - Superior sagittal sinus thrombosis [Unknown]
  - Dermatitis [Unknown]

NARRATIVE: CASE EVENT DATE: 20200421
